FAERS Safety Report 18049243 (Version 1)
Quarter: 2020Q3

REPORT INFORMATION
  Report Type: Spontaneous
  Country: RO (occurrence: RO)
  Receive Date: 20200721
  Receipt Date: 20200721
  Transmission Date: 20201103
  Serious: Yes (Hospitalization)
  Sender: FDA-Public Use
  Company Number: RO-TEVA-2020-RO-1802121

PATIENT
  Age: 65 Year
  Sex: Female

DRUGS (5)
  1. BISOPROLOL [Concomitant]
     Active Substance: BISOPROLOL
     Dosage: 2.5 MILLIGRAM DAILY;
     Dates: start: 20180508
  2. INDAPAMID [Concomitant]
     Active Substance: INDAPAMIDE
     Dosage: 1.5 MILLIGRAM DAILY;
     Dates: start: 20180508
  3. ALPHACALCIDOL [Concomitant]
     Active Substance: ALFACALCIDOL
     Dosage: 1 MICROGRAM DAILY;
     Dates: start: 20170613
  4. METHOTREXAT [Suspect]
     Active Substance: METHOTREXATE
     Dosage: 7.5 MG / WEEK
     Route: 058
     Dates: start: 20131120
  5. CLORHIDRAT DE METFORMIN [Concomitant]
     Dosage: 1000 MILLIGRAM DAILY;
     Dates: start: 20170315

REACTIONS (3)
  - Back pain [Recovered/Resolved]
  - Nausea [Recovered/Resolved]
  - Renal colic [Recovered/Resolved]

NARRATIVE: CASE EVENT DATE: 20200121
